FAERS Safety Report 20781320 (Version 1)
Quarter: 2022Q2

REPORT INFORMATION
  Report Type: Spontaneous
  Country: FR (occurrence: FR)
  Receive Date: 20220504
  Receipt Date: 20220504
  Transmission Date: 20220721
  Serious: Yes (Other)
  Sender: FDA-Public Use
  Company Number: None

PATIENT
  Age: 15 Year
  Sex: Male
  Weight: 42 kg

DRUGS (2)
  1. RISPERDAL [Suspect]
     Active Substance: RISPERIDONE
     Indication: Eating disorder
     Route: 048
     Dates: start: 20220210, end: 20220301
  2. RISPERDAL [Suspect]
     Active Substance: RISPERIDONE
     Route: 048
     Dates: start: 20220302, end: 20220317

REACTIONS (3)
  - Neutropenia [Unknown]
  - Depressed level of consciousness [Unknown]
  - Anaemia [Unknown]

NARRATIVE: CASE EVENT DATE: 20220317
